FAERS Safety Report 16724515 (Version 1)
Quarter: 2019Q3

REPORT INFORMATION
  Report Type: Spontaneous
  Country: US (occurrence: US)
  Receive Date: 20190703
  Receipt Date: 20190703
  Transmission Date: 20191005
  Serious: No
  Sender: FDA-Public Use
  Company Number: None

PATIENT
  Age: 70 Year
  Sex: Male
  Weight: 89.4 kg

DRUGS (1)
  1. PACLITAXEL PROTEIN-BOUND PARTICLES [Suspect]
     Active Substance: PACLITAXEL
     Dates: end: 20190621

REACTIONS (3)
  - Pyrexia [None]
  - Platelet count decreased [None]
  - Neutropenia [None]

NARRATIVE: CASE EVENT DATE: 20190621
